FAERS Safety Report 8402435-9 (Version None)
Quarter: 2012Q2

REPORT INFORMATION
  Report Type: 
  Country: None (occurrence: None)
  Receive Date: 20120601
  Receipt Date: 20120522
  Transmission Date: 20120825
  Serious: Yes (Other)
  Sender: FDA-Public Use
  Company Number: US-BAYER-2012-050932

PATIENT
  Sex: Female

DRUGS (1)
  1. MILK OF MAGNESIA TAB [Suspect]
     Indication: CONSTIPATION
     Dosage: 4 DF, QD
     Route: 048
     Dates: start: 20120520, end: 20120520

REACTIONS (8)
  - ABDOMINAL PAIN [None]
  - DEHYDRATION [None]
  - GASTROINTESTINAL PAIN [None]
  - WEIGHT DECREASED [None]
  - VIRAL INFECTION [None]
  - VOMITING [None]
  - NAUSEA [None]
  - DIARRHOEA [None]
